FAERS Safety Report 9599379 (Version 1)
Quarter: 2013Q4

REPORT INFORMATION
  Report Type: Spontaneous
  Country: US (occurrence: US)
  Receive Date: 20131004
  Receipt Date: 20131004
  Transmission Date: 20140711
  Serious: No
  Sender: FDA-Public Use
  Company Number: US-AMGEN-USASP2013029177

PATIENT
  Age: 47 Year
  Sex: Female
  Weight: 78.01 kg

DRUGS (7)
  1. ENBREL [Suspect]
     Indication: PRODUCT USED FOR UNKNOWN INDICATION
     Dosage: 50 MG, QWK
     Route: 058
  2. TRAMADOL HYDROCHLORIDE [Concomitant]
     Dosage: 50 MG, UNK
  3. LOTENSIN HCT [Concomitant]
     Dosage: 10/12.5
  4. NEURONTIN [Concomitant]
     Dosage: 300 MG, UNK
  5. METHOTREXATE [Concomitant]
     Dosage: 2.5 MG, UNK
  6. LOESTRIN [Concomitant]
     Dosage: 24 UNK, UNK
  7. LIVALO [Concomitant]
     Dosage: 1 MG, UNK

REACTIONS (2)
  - Rectal haemorrhage [Unknown]
  - Diarrhoea [Unknown]
